FAERS Safety Report 16099890 (Version 1)
Quarter: 2019Q1

REPORT INFORMATION
  Report Type: Spontaneous
  Country: CO (occurrence: CO)
  Receive Date: 20190320
  Receipt Date: 20190320
  Transmission Date: 20190418
  Serious: Yes (Hospitalization)
  Sender: FDA-Public Use
  Company Number: None

PATIENT
  Age: 4 Year
  Sex: Male
  Weight: 14 kg

DRUGS (1)
  1. TUMS ULTRA [Suspect]
     Active Substance: CALCIUM CARBONATE
     Indication: ACCIDENTAL EXPOSURE TO PRODUCT
     Route: 048
     Dates: start: 20190220, end: 20190220

REACTIONS (5)
  - Accidental exposure to product by child [None]
  - Product packaging issue [None]
  - Product complaint [None]
  - Blood calcium increased [None]
  - Product use complaint [None]

NARRATIVE: CASE EVENT DATE: 20190220
